FAERS Safety Report 19164129 (Version 3)
Quarter: 2021Q2

REPORT INFORMATION
  Report Type: Spontaneous
  Country: US (occurrence: US)
  Receive Date: 20210421
  Receipt Date: 20210428
  Transmission Date: 20210717
  Serious: No
  Sender: FDA-Public Use
  Company Number: US-SA-2021SA122197

PATIENT
  Age: 75 Year
  Sex: Female

DRUGS (1)
  1. TOUJEO [Suspect]
     Active Substance: INSULIN GLARGINE
     Indication: TYPE 2 DIABETES MELLITUS
     Dosage: 72 UNITS DAILY
     Route: 065

REACTIONS (4)
  - Therapeutic response decreased [Unknown]
  - Blood glucose increased [Unknown]
  - Product quality issue [Unknown]
  - Product storage error [Unknown]
